FAERS Safety Report 9817974 (Version 1)
Quarter: 2014Q1

REPORT INFORMATION
  Report Type: Report from Study
  Country: US (occurrence: US)
  Receive Date: 20140115
  Receipt Date: 20140115
  Transmission Date: 20141002
  Serious: Yes (Death)
  Sender: FDA-Public Use
  Company Number: US-ROCHE-1333480

PATIENT
  Age: 42 Year
  Sex: Female
  Weight: 94.43 kg

DRUGS (12)
  1. AVASTIN [Suspect]
     Indication: LUNG NEOPLASM MALIGNANT
     Dosage: 13/DEC/2010, 03/JAN/2011, 24/JAN/2011, 14/FEB/2011,20/JUN/2011, 25/JUL/2011, 24/MAR/2011, 03/MAY/201
     Route: 042
     Dates: start: 20101206
  2. AVASTIN [Suspect]
     Indication: METASTASES TO BONE
     Dosage: 11/JUL/2011 RECEIVED AT SAME DOSE.
     Route: 042
     Dates: start: 20110606
  3. CARBOPLATIN [Concomitant]
     Route: 042
  4. TAXOL [Concomitant]
     Route: 042
  5. ALOXI [Concomitant]
     Route: 042
  6. DEXAMETHASONE [Concomitant]
     Route: 042
  7. ZANTAC [Concomitant]
     Route: 065
  8. BENADRYL (UNITED STATES) [Concomitant]
     Route: 042
  9. EMEND [Concomitant]
     Route: 042
  10. NEULASTA [Concomitant]
  11. ALIMTA [Concomitant]
  12. COUMADIN [Concomitant]
     Route: 065

REACTIONS (11)
  - Death [Fatal]
  - Lung neoplasm malignant [Unknown]
  - Fatigue [Unknown]
  - Neck pain [Unknown]
  - Deep vein thrombosis [Unknown]
  - Cough [Unknown]
  - Wound infection [Recovered/Resolved]
  - Pulmonary congestion [Unknown]
  - Neuropathy peripheral [Unknown]
  - Local swelling [Unknown]
  - Neck pain [Unknown]
